FAERS Safety Report 4981802-X (Version None)
Quarter: 2006Q2

REPORT INFORMATION
  Report Type: 
  Country: None (occurrence: None)
  Receive Date: 20060425
  Receipt Date: 20060424
  Transmission Date: 20061013
  Serious: Yes (Other)
  Sender: FDA-Public Use
  Company Number: 05PO280301740

PATIENT
  Age: 39 Year
  Sex: Female

DRUGS (9)
  1. COMBIVIR [Suspect]
     Indication: DRUG USE FOR UNKNOWN INDICATION
     Dosage: 1TAB TWICE PER DAY
     Route: 048
  2. VALPROIC ACID [Suspect]
     Indication: DRUG USE FOR UNKNOWN INDICATION
     Dosage: 500MG TWICE PER DAY
     Route: 048
  3. ADVAIR DISKUS 100/50 [Concomitant]
     Route: 055
  4. EFAVIRENZ [Concomitant]
     Route: 048
  5. PAXIL [Concomitant]
     Route: 048
  6. QUETIAPINE FUMARATE [Concomitant]
     Route: 048
  7. SALBUTAMOL [Concomitant]
     Route: 055
  8. STAVUDINE [Concomitant]
     Route: 048
  9. TOPIRAMATE [Concomitant]

REACTIONS (13)
  - AMNESIA [None]
  - ANAEMIA MACROCYTIC [None]
  - ANGINA PECTORIS [None]
  - ANOREXIA [None]
  - ASTHENIA [None]
  - DRUG INTERACTION [None]
  - DYSPNOEA [None]
  - HEART RATE INCREASED [None]
  - LEUKOPENIA [None]
  - MYALGIA [None]
  - SOMNOLENCE [None]
  - TINNITUS [None]
  - WEIGHT DECREASED [None]
